FAERS Safety Report 5909442-6 (Version None)
Quarter: 2008Q4

REPORT INFORMATION
  Report Type: 
  Country: None (occurrence: None)
  Receive Date: 20081006
  Receipt Date: 20080924
  Transmission Date: 20090506
  Serious: Yes (Hospitalization, Other)
  Sender: FDA-Public Use
  Company Number: GB-PFIZER INC-2008081602

PATIENT
  Age: 57 Year
  Sex: Female

DRUGS (4)
  1. EPIRUBICIN HYDROCHLORIDE [Suspect]
     Indication: BREAST CANCER METASTATIC
  2. CAPECITABINE [Suspect]
     Indication: BREAST CANCER METASTATIC
  3. TRASTUZUMAB [Suspect]
     Indication: BREAST CANCER METASTATIC
     Dates: start: 20030301
  4. VINORELBINE [Suspect]
     Indication: BREAST CANCER METASTATIC

REACTIONS (6)
  - BREAST CANCER METASTATIC [None]
  - CARDIAC FAILURE [None]
  - CEREBELLAR ATAXIA [None]
  - DISEASE PROGRESSION [None]
  - EJECTION FRACTION DECREASED [None]
  - LYMPHOEDEMA [None]
